FAERS Safety Report 8262857-6 (Version None)
Quarter: 2012Q1

REPORT INFORMATION
  Report Type: 
  Country: None (occurrence: None)
  Receive Date: 20120327
  Receipt Date: 20090522
  Transmission Date: 20120608
  Serious: Yes (Other)
  Sender: FDA-Public Use
  Company Number: PHEH2009US02291

PATIENT
  Age: 39 Year
  Sex: Male
  Weight: 68.5 kg

DRUGS (5)
  1. NEURONTIN [Concomitant]
  2. NAPROSYN [Concomitant]
  3. GLEEVEC [Suspect]
     Indication: CHRONIC MYELOID LEUKAEMIA
     Dosage: 400 MG, QD, ORAL
     Route: 048
     Dates: start: 20060701
  4. MS CONTIN [Concomitant]
  5. FOLIC ACID [Concomitant]

REACTIONS (2)
  - DYSAESTHESIA [None]
  - NEUROPATHY PERIPHERAL [None]
